FAERS Safety Report 11904842 (Version 1)
Quarter: 2016Q1

REPORT INFORMATION
  Report Type: Spontaneous
  Country: US (occurrence: US)
  Receive Date: 20160108
  Receipt Date: 20160108
  Transmission Date: 20160526
  Serious: Yes (Hospitalization, Other)
  Sender: FDA-Public Use
  Company Number: US-BRISTOL-MYERS SQUIBB COMPANY-BMS-2015-092052

PATIENT
  Sex: Female

DRUGS (1)
  1. VIDEX [Suspect]
     Active Substance: DIDANOSINE
     Indication: HIV INFECTION
     Route: 048

REACTIONS (4)
  - Chest pain [Unknown]
  - Gastrointestinal tube insertion [Unknown]
  - Respiratory distress [Unknown]
  - Osteomyelitis [Unknown]
